FAERS Safety Report 6814893-1 (Version None)
Quarter: 2010Q3

REPORT INFORMATION
  Report Type: 
  Country: None (occurrence: None)
  Receive Date: 20100702
  Receipt Date: 20100625
  Transmission Date: 20110219
  Serious: Yes (Life-Threatening, Hospitalization)
  Sender: FDA-Public Use
  Company Number: US-ROCHE-705503

PATIENT
  Sex: Female
  Weight: 64.6 kg

DRUGS (6)
  1. PEGINTERFERON ALFA-2A [Suspect]
     Dosage: DOSE : 180G-MICROGRAM, LAST DOSE : 18 MAY 2010, PERMANENTLY DISCONTINUED.
     Route: 058
     Dates: start: 20100511, end: 20100622
  2. RIBAVIRIN [Suspect]
     Dosage: LAST DOSE:22 MAY 2010.COMMENT : 400MGQAMAN 600 MG Q PM EACH DAY, PERMANENTLY DISCONTINUED
     Route: 048
     Dates: start: 20100511, end: 20100622
  3. NITAZOXANIDE [Suspect]
     Dosage: LAST DOSE : 22 MAY 2010, PERMANENTLY DISCONTINUED
     Route: 048
     Dates: start: 20100414, end: 20100622
  4. LISINOPRIL AND HYDROCHLOROTHIAZIDE [Suspect]
     Indication: HYPERTENSION
     Dosage: DURATION OF USED: APPROXIMATELY 2 YEARS, DATE OF LAST DOSE: 22 MAY 2010
     Route: 048
  5. VALTREX [Concomitant]
     Indication: HERPES SIMPLEX
     Dosage: DURATION OF USED: APPROXIMATELY 2 YEARS, DATE OF LAST DOSE: 22MAY 2010.
     Route: 048
  6. DEPO-PROVERA [Concomitant]
     Indication: CONTRACEPTION
     Dosage: DURATION OF USE: 1 MONTH, DATE OF LAST DOSE: 13 APRIL 2010
     Route: 030

REACTIONS (1)
  - RENAL FAILURE ACUTE [None]
